FAERS Safety Report 13615305 (Version 1)
Quarter: 2017Q2

REPORT INFORMATION
  Report Type: Spontaneous
  Country: US (occurrence: US)
  Receive Date: 20170606
  Receipt Date: 20170606
  Transmission Date: 20170830
  Serious: Yes (Other)
  Sender: FDA-Public Use
  Company Number: US-BEH-2017081021

PATIENT
  Age: 26 Year
  Sex: Male

DRUGS (2)
  1. STIMATE [Suspect]
     Active Substance: DESMOPRESSIN ACETATE
     Indication: FACTOR VIII DEFICIENCY
     Dosage: 300 ?G, PRN
     Route: 045
     Dates: start: 20140401
  2. STIMATE [Suspect]
     Active Substance: DESMOPRESSIN ACETATE
     Indication: EPISTAXIS

REACTIONS (2)
  - Swelling [Unknown]
  - Food allergy [Unknown]

NARRATIVE: CASE EVENT DATE: 201705
